FAERS Safety Report 24775583 (Version 1)
Quarter: 2024Q4

REPORT INFORMATION
  Report Type: Other
  Country: FR (occurrence: FR)
  Receive Date: 20241226
  Receipt Date: 20241226
  Transmission Date: 20250114
  Serious: Yes (Hospitalization)
  Sender: ZYDUS PHARM
  Company Number: None

PATIENT

DRUGS (4)
  1. BISOPROLOL [Suspect]
     Active Substance: BISOPROLOL
     Indication: Poisoning deliberate
     Dosage: UNK,1 TOTAL
     Route: 048
     Dates: start: 20240711, end: 20240711
  2. DULOXETINE [Suspect]
     Active Substance: DULOXETINE
     Indication: Poisoning deliberate
     Dosage: UNK,1 TOTAL
     Route: 048
     Dates: start: 20240711, end: 20240711
  3. ALPRAZOLAM [Suspect]
     Active Substance: ALPRAZOLAM
     Indication: Poisoning deliberate
     Dosage: UNK,1 TOTAL
     Route: 048
     Dates: start: 20240711, end: 20240711
  4. ROPINIROLE [Suspect]
     Active Substance: ROPINIROLE
     Indication: Poisoning deliberate
     Dosage: UNK,1 TOTAL
     Route: 048
     Dates: start: 20240711, end: 20240711

REACTIONS (1)
  - Coma [Recovered/Resolved]

NARRATIVE: CASE EVENT DATE: 20240711
